FAERS Safety Report 25819593 (Version 1)
Quarter: 2025Q3

REPORT INFORMATION
  Report Type: Spontaneous
  Country: IL (occurrence: IL)
  Receive Date: 20250918
  Receipt Date: 20250918
  Transmission Date: 20251020
  Serious: Yes (Life-Threatening, Hospitalization)
  Sender: BOEHRINGER INGELHEIM
  Company Number: IL-BoehringerIngelheim-2025-BI-096187

PATIENT
  Age: 89 Year
  Sex: Female

DRUGS (12)
  1. EMPAGLIFLOZIN\METFORMIN HYDROCHLORIDE [Suspect]
     Active Substance: EMPAGLIFLOZIN\METFORMIN HYDROCHLORIDE
     Indication: Diabetes mellitus
     Dosage: 12.5/1000
  2. Alphagan P col [Concomitant]
     Indication: Product used for unknown indication
  3. AMLODIPINE [Concomitant]
     Active Substance: AMLODIPINE BESYLATE
     Indication: Product used for unknown indication
  4. Azarga col [Concomitant]
     Indication: Product used for unknown indication
  5. Calcium 600 mg + vit. D200 [Concomitant]
     Indication: Product used for unknown indication
  6. Disothiazide 25 mg [Concomitant]
     Indication: Product used for unknown indication
  7. Ezatot 10/10 mg [Concomitant]
     Indication: Product used for unknown indication
  8. MAGNESIUM CITRATE [Concomitant]
     Active Substance: MAGNESIUM CITRATE
     Indication: Product used for unknown indication
  9. Micropirin 75 mg [Concomitant]
     Indication: Product used for unknown indication
  10. Travatan col [Concomitant]
     Indication: Product used for unknown indication
  11. TRULICITY [Concomitant]
     Active Substance: DULAGLUTIDE
     Indication: Product used for unknown indication
  12. Vitamin D 1000 iu [Concomitant]
     Indication: Product used for unknown indication

REACTIONS (3)
  - Urosepsis [Unknown]
  - Dyspnoea [Unknown]
  - Lactic acidosis [Unknown]
